FAERS Safety Report 9304477 (Version 4)
Quarter: 2014Q2

REPORT INFORMATION
  Report Type: Spontaneous
  Country: US (occurrence: US)
  Receive Date: 20130523
  Receipt Date: 20140515
  Transmission Date: 20141212
  Serious: Yes (Disabling)
  Sender: FDA-Public Use
  Company Number: US-009507513-1305USA011639

PATIENT
  Sex: Male
  Weight: 78.91 kg

DRUGS (2)
  1. PROPECIA [Suspect]
     Indication: ALOPECIA
     Dosage: 1 MG, QD
     Route: 048
     Dates: start: 1999, end: 2012
  2. ACETAMINOPHEN (+) DICHLORALPHENAZONE (+) ISOMETHEPTENE MUCATE [Concomitant]
     Indication: MIGRAINE

REACTIONS (20)
  - Back injury [Not Recovered/Not Resolved]
  - Anxiety [Not Recovered/Not Resolved]
  - Anxiety [Unknown]
  - Apathy [Not Recovered/Not Resolved]
  - Stress [Unknown]
  - Headache [Unknown]
  - Ear pain [Unknown]
  - Sinus congestion [Unknown]
  - Oropharyngeal pain [Unknown]
  - Lymphadenopathy [Unknown]
  - Back injury [Unknown]
  - Fatigue [Unknown]
  - Sinus congestion [Unknown]
  - Suicidal ideation [Unknown]
  - Adverse drug reaction [Unknown]
  - Sebaceous gland disorder [Unknown]
  - Sexual dysfunction [Not Recovered/Not Resolved]
  - Erectile dysfunction [Not Recovered/Not Resolved]
  - Depression [Not Recovered/Not Resolved]
  - Depression [Unknown]
